FAERS Safety Report 5606032-X (Version None)
Quarter: 2008Q1

REPORT INFORMATION
  Report Type: 
  Country: None (occurrence: None)
  Receive Date: 20080129
  Receipt Date: 20080116
  Transmission Date: 20080703
  Serious: Yes (Hospitalization)
  Sender: FDA-Public Use
  Company Number: FR-GENENTECH-249557

PATIENT
  Sex: Female
  Weight: 75 kg

DRUGS (2)
  1. XOLAIR [Suspect]
     Indication: ASTHMA
     Dosage: 225 MG, 2/WEEK
     Route: 058
     Dates: start: 20061127, end: 20070517
  2. SINGULAIR [Suspect]
     Indication: DRUG USE FOR UNKNOWN INDICATION
     Dosage: UNK, UNKNOWN
     Route: 048
     Dates: end: 20070517

REACTIONS (3)
  - ACUTE RESPIRATORY FAILURE [None]
  - ALLERGIC GRANULOMATOUS ANGIITIS [None]
  - PNEUMONIA ESCHERICHIA [None]
